FAERS Safety Report 17946022 (Version 1)
Quarter: 2020Q2

REPORT INFORMATION
  Report Type: Spontaneous
  Country: US (occurrence: US)
  Receive Date: 20200626
  Receipt Date: 20200626
  Transmission Date: 20200714
  Serious: No
  Sender: FDA-Public Use
  Company Number: US-CELGENEUS-USA-20200606423

PATIENT
  Age: 54 Year
  Sex: Male

DRUGS (1)
  1. REVLIMID [Suspect]
     Active Substance: LENALIDOMIDE
     Indication: B-CELL LYMPHOMA
     Dosage: 20 MILLIGRAM
     Route: 048
     Dates: start: 202006

REACTIONS (7)
  - Somnolence [Unknown]
  - Heart rate increased [Unknown]
  - Constipation [Unknown]
  - Urine output decreased [Unknown]
  - Paraesthesia [Unknown]
  - Blood urine present [Unknown]
  - Abdominal distension [Unknown]

NARRATIVE: CASE EVENT DATE: 202006
